FAERS Safety Report 6129723-3 (Version None)
Quarter: 2009Q1

REPORT INFORMATION
  Report Type: 
  Country: None (occurrence: None)
  Receive Date: 20090324
  Receipt Date: 20090316
  Transmission Date: 20090719
  Serious: Yes (Congenital Anomaly)
  Sender: FDA-Public Use
  Company Number: A0755066A

PATIENT

DRUGS (2)
  1. COMBIVIR [Suspect]
     Indication: HIV INFECTION
     Dosage: 1TAB TWICE PER DAY
     Dates: start: 20080619
  2. KALETRA [Concomitant]
     Indication: HIV INFECTION
     Dates: start: 20080619

REACTIONS (2)
  - CONGENITAL CYST [None]
  - DRUG EXPOSURE DURING PREGNANCY [None]
